FAERS Safety Report 18717330 (Version 3)
Quarter: 2021Q2

REPORT INFORMATION
  Report Type: Report from Study
  Country: DE (occurrence: DE)
  Receive Date: 20210108
  Receipt Date: 20210616
  Transmission Date: 20210717
  Serious: Yes (Hospitalization, Other)
  Sender: FDA-Public Use
  Company Number: NVSC2020DE347890

PATIENT
  Age: 49 Year
  Sex: Male
  Weight: 88 kg

DRUGS (8)
  1. CEFTRIAXONE. [Concomitant]
     Active Substance: CEFTRIAXONE
     Indication: PRODUCT USED FOR UNKNOWN INDICATION
     Dosage: UNK
     Route: 042
  2. IBUPROFEN. [Concomitant]
     Active Substance: IBUPROFEN
     Indication: PRODUCT USED FOR UNKNOWN INDICATION
     Dosage: 400 MG, BID (1?0?1)
     Route: 065
  3. PANTOZOL [Concomitant]
     Active Substance: PANTOPRAZOLE SODIUM
     Indication: PRODUCT USED FOR UNKNOWN INDICATION
     Dosage: 20 MG, QD (1?0?0)
     Route: 065
  4. COSENTYX [Suspect]
     Active Substance: SECUKINUMAB
     Indication: PSORIASIS
     Dosage: 150 MG, QMO
     Route: 058
     Dates: start: 20171108
  5. CEFPODOXIME [Concomitant]
     Active Substance: CEFPODOXIME
     Indication: PRODUCT USED FOR UNKNOWN INDICATION
     Dosage: UNK
     Route: 048
  6. ATORVASTATIN [Suspect]
     Active Substance: ATORVASTATIN
     Indication: PRODUCT USED FOR UNKNOWN INDICATION
     Dosage: 60 MG, QD (1?0?0)
     Route: 048
     Dates: start: 201806
  7. CIPROFLOXACIN. [Concomitant]
     Active Substance: CIPROFLOXACIN
     Indication: PRODUCT USED FOR UNKNOWN INDICATION
     Dosage: 500 MG, BID (1?0?1 FOR ANOTHER 10 DAYS)
     Route: 065
  8. TAMSULOSIN [Concomitant]
     Active Substance: TAMSULOSIN
     Indication: MICTURITION DISORDER
     Dosage: 0.4 MG, QD (1?0?0)
     Route: 065

REACTIONS (27)
  - Epididymitis [Unknown]
  - Scrotal pain [Unknown]
  - Leukocyturia [Unknown]
  - Urinary tract disorder [Unknown]
  - Bladder hypertrophy [Unknown]
  - Bladder neck obstruction [Unknown]
  - Escherichia urinary tract infection [Recovered/Resolved]
  - Chills [Unknown]
  - Benign prostatic hyperplasia [Unknown]
  - Hydronephrosis [Recovered/Resolved]
  - Pyrexia [Unknown]
  - Ureterolithiasis [Recovered/Resolved]
  - Nephrolithiasis [Recovered/Resolved]
  - Hydronephrosis [Recovered/Resolved]
  - Prostatic obstruction [Unknown]
  - Urinary tract infection [Unknown]
  - Abdominal pain upper [Unknown]
  - Flank pain [Unknown]
  - Prostatitis [Not Recovered/Not Resolved]
  - Psoriasis [Unknown]
  - Nephrolithiasis [Recovered/Resolved]
  - Haematuria [Recovered/Resolved]
  - Leukocytosis [Unknown]
  - C-reactive protein increased [Unknown]
  - Urine abnormality [Unknown]
  - Nephrolithiasis [Recovered/Resolved]
  - Cystitis [Unknown]

NARRATIVE: CASE EVENT DATE: 20190902
